FAERS Safety Report 24434449 (Version 1)
Quarter: 2024Q4

REPORT INFORMATION
  Report Type: Spontaneous
  Country: SE (occurrence: SE)
  Receive Date: 20241014
  Receipt Date: 20241014
  Transmission Date: 20250114
  Serious: Yes (Other)
  Sender: GALDERMA
  Company Number: None

PATIENT

DRUGS (11)
  1. MIRVASO [Suspect]
     Active Substance: BRIMONIDINE TARTRATE
     Indication: Rosacea
     Dosage: 1 GRAM, QD
     Route: 061
     Dates: start: 20240914, end: 20240928
  2. HYDROCORTISONE\MICONAZOLE NITRATE [Concomitant]
     Active Substance: HYDROCORTISONE\MICONAZOLE NITRATE
     Indication: Fungal infection
     Dosage: 1 DOSAGE FORM, TO BE SMEARED AND RUBBED INTO THE SKIN MORNING AND EVENING FOR 2-4 WEEKS. TREATMENT S
     Route: 061
     Dates: start: 20240914
  3. KETOCONAZOL ACTAVIS [Concomitant]
     Indication: Fungal infection
     Dosage: 1 DOSAGE FORM, ONCE DAILY FOR 5 DAYS
     Route: 065
     Dates: start: 20240914
  4. KETOCONAZOL ACTAVIS [Concomitant]
     Dosage: 1 DOSAGE FORM, BIW, THEREAFTER TWICE WEEKLY FOR 3-4 WEEKS
     Route: 065
  5. OMEPRAZOL APOFRI [Concomitant]
     Indication: Dyspepsia
     Dosage: 20 MILLIGRAM
     Route: 065
     Dates: start: 20240520
  6. ESTRIOL [Concomitant]
     Active Substance: ESTRIOL
     Indication: Vulvovaginal dryness
     Dosage: 1 DOSAGE FORM, ONE VAGITORIUM IN THE VAGINA EVERY OTHER DAY FOR 2 WEEKS
     Route: 065
     Dates: start: 20230913
  7. ESTRIOL [Concomitant]
     Active Substance: ESTRIOL
     Dosage: 1 DOSAGE FORM, BIW
     Route: 065
  8. Miniderm [Concomitant]
     Indication: Dry skin
     Dosage: 1 DOSAGE FORM
     Route: 065
     Dates: start: 20240520
  9. ACETAMINOPHEN [Concomitant]
     Active Substance: ACETAMINOPHEN
     Indication: Pain
     Dosage: 1 GRAM, 1 TABLET WHEN NEEDED FOR PAIN. MAXIMUM 4 TIMES PER DAY
     Route: 065
     Dates: start: 20231020
  10. Artelac [Concomitant]
     Indication: Dry eye
     Dosage: 1 DOSAGE FORM, 1 PIECE OF EYEDROPS, SOLUTION IN SINGLE-DOSE CONTAINERS 4 TIMES DAILY
     Route: 061
     Dates: start: 20231130
  11. GAVISCON [Concomitant]
     Active Substance: ALUMINUM HYDROXIDE\MAGNESIUM CARBONATE
     Indication: Hiatus hernia
     Dosage: 10 MILLILITER, QID
     Route: 065
     Dates: start: 20240827

REACTIONS (7)
  - Skin burning sensation [Not Recovered/Not Resolved]
  - Paraesthesia oral [Not Recovered/Not Resolved]
  - Paraesthesia [Not Recovered/Not Resolved]
  - Dizziness [Not Recovered/Not Resolved]
  - Joint swelling [Not Recovered/Not Resolved]
  - Swollen tongue [Not Recovered/Not Resolved]
  - Dysphonia [Not Recovered/Not Resolved]

NARRATIVE: CASE EVENT DATE: 20240901
